FAERS Safety Report 8611584-1 (Version None)
Quarter: 2012Q3

REPORT INFORMATION
  Report Type: 
  Country: None (occurrence: None)
  Receive Date: 20120822
  Receipt Date: 20120815
  Transmission Date: 20120928
  Serious: Yes (Death, Other)
  Sender: FDA-Public Use
  Company Number: PHHY2012IN067579

PATIENT
  Sex: Male
  Weight: 1.5 kg

DRUGS (1)
  1. DICLOFENAC SODIUM [Suspect]
     Indication: BACK PAIN
     Dosage: 50 MG, THIRD TRIMESTERS OF PREGNANCY
     Route: 064

REACTIONS (6)
  - NEONATAL RESPIRATORY DISTRESS SYNDROME [None]
  - NEONATAL ANURIA [None]
  - OEDEMA [None]
  - INFECTION [None]
  - WEIGHT INCREASED [None]
  - PERITONITIS [None]
